FAERS Safety Report 9691430 (Version 1)
Quarter: 2013Q4

REPORT INFORMATION
  Report Type: Spontaneous
  Country: CH (occurrence: CH)
  Receive Date: 20131115
  Receipt Date: 20131115
  Transmission Date: 20140711
  Serious: Yes (Hospitalization)
  Sender: FDA-Public Use
  Company Number: CH-ASTRAZENECA-2013SE82195

PATIENT
  Age: 62 Year
  Sex: Female
  Weight: 100 kg

DRUGS (14)
  1. ATACAND [Suspect]
     Indication: ESSENTIAL HYPERTENSION
     Route: 048
     Dates: start: 20130913
  2. LITHIOFOR [Interacting]
     Indication: BIPOLAR DISORDER
     Route: 048
     Dates: start: 20130903, end: 20131009
  3. LITHIOFOR [Interacting]
     Indication: MANIA
     Route: 048
     Dates: start: 20130903, end: 20131009
  4. LITHIOFOR [Interacting]
     Indication: BIPOLAR DISORDER
     Route: 048
     Dates: start: 20131010
  5. LITHIOFOR [Interacting]
     Indication: MANIA
     Route: 048
     Dates: start: 20131010
  6. LITHIOFOR [Interacting]
     Indication: BIPOLAR DISORDER
     Route: 048
     Dates: start: 20131011, end: 20131012
  7. LITHIOFOR [Interacting]
     Indication: MANIA
     Route: 048
     Dates: start: 20131011, end: 20131012
  8. LITHIOFOR [Interacting]
     Indication: BIPOLAR DISORDER
     Route: 048
     Dates: start: 20131013
  9. LITHIOFOR [Interacting]
     Indication: MANIA
     Route: 048
     Dates: start: 20131013
  10. GLUCOPHAGE [Concomitant]
     Indication: TYPE 2 DIABETES MELLITUS
     Route: 048
     Dates: start: 20130913
  11. NEXIUM [Concomitant]
     Route: 048
     Dates: start: 20130913
  12. SIFROL [Concomitant]
     Route: 048
     Dates: start: 20130913
  13. CLOPIXOL [Concomitant]
     Route: 030
     Dates: start: 20131017, end: 20131017
  14. BIOFLORIN [Concomitant]
     Route: 048
     Dates: start: 20131022

REACTIONS (11)
  - Drug interaction [Unknown]
  - Overdose [Recovered/Resolved]
  - Drug level increased [Recovered/Resolved]
  - Confusional state [Recovered/Resolved]
  - Sluggishness [Unknown]
  - Diarrhoea [Unknown]
  - Disorientation [Unknown]
  - Decreased activity [Unknown]
  - Dehydration [Unknown]
  - Hypokalaemia [Unknown]
  - Renal failure acute [Recovered/Resolved]
